FAERS Safety Report 8273063-3 (Version None)
Quarter: 2012Q2

REPORT INFORMATION
  Report Type: 
  Country: None (occurrence: None)
  Receive Date: 20120411
  Receipt Date: 20120328
  Transmission Date: 20120825
  Serious: Yes (Other)
  Sender: FDA-Public Use
  Company Number: US-PFIZER INC-2012084238

PATIENT
  Age: 68 Year
  Sex: Female

DRUGS (7)
  1. MOTRIN IB [Suspect]
     Indication: PAIN
     Dosage: MAYBE A COUPLE EACH DAY
     Route: 048
     Dates: start: 20100101
  2. CITRACAL [Concomitant]
     Indication: ROUTINE HEALTH MAINTENANCE
     Dosage: 2 DF, 2X/DAY
     Route: 065
  3. LOVASTATIN [Concomitant]
     Indication: BLOOD CHOLESTEROL INCREASED
     Dosage: 20 MG, 1X/DAY
     Route: 065
  4. VITAMIN B COMPLEX CAP [Concomitant]
     Indication: ROUTINE HEALTH MAINTENANCE
     Dosage: ONCE PER DAY
     Route: 065
  5. MOTRIN IB [Suspect]
     Indication: ANTIINFLAMMATORY THERAPY
     Dosage: 800 MG, EVERY 4 HRS
     Route: 048
     Dates: start: 20100401, end: 20100101
  6. AMLODIPINE [Concomitant]
     Indication: HYPERTENSION
     Dosage: 5 MG, 1X/DAY
     Route: 065
  7. VITAMIN D [Concomitant]
     Indication: ROUTINE HEALTH MAINTENANCE
     Dosage: 2000 IU, 1X/DAY
     Route: 065

REACTIONS (2)
  - GASTROINTESTINAL HAEMORRHAGE [None]
  - OVERDOSE [None]
